FAERS Safety Report 5332165-1 (Version None)
Quarter: 2007Q2

REPORT INFORMATION
  Report Type: 
  Country: None (occurrence: None)
  Receive Date: 20070523
  Receipt Date: 20070518
  Transmission Date: 20071010
  Serious: Yes (Other)
  Sender: FDA-Public Use
  Company Number: GB-AVENTIS-200714297GDDC

PATIENT
  Age: 66 Year
  Sex: Male

DRUGS (6)
  1. LANTUS [Suspect]
     Route: 058
     Dates: start: 20070216
  2. NOVOMIX                            /01475801/ [Suspect]
     Indication: DIABETES MELLITUS
     Route: 058
     Dates: start: 20070119
  3. NOVORAPID [Suspect]
     Route: 058
     Dates: start: 20070216
  4. ATENOLOL [Concomitant]
  5. DIGOXIN [Concomitant]
  6. HUMULIN M3                         /00646001/ [Concomitant]

REACTIONS (4)
  - BLOOD GLUCOSE ABNORMAL [None]
  - DYSPNOEA [None]
  - INSOMNIA [None]
  - TACHYCARDIA [None]
